FAERS Safety Report 4990116-3 (Version None)
Quarter: 2006Q2

REPORT INFORMATION
  Report Type: 
  Country: None (occurrence: None)
  Receive Date: 20060503
  Receipt Date: 20051019
  Transmission Date: 20061013
  Serious: Yes (Hospitalization, Other)
  Sender: FDA-Public Use
  Company Number: US-MERCK-0510USA08228

PATIENT
  Age: 43 Year
  Sex: Female
  Weight: 89 kg

DRUGS (6)
  1. VIOXX [Suspect]
     Indication: ARTHRITIS
     Route: 048
     Dates: start: 19990601, end: 20010801
  2. VIOXX [Suspect]
     Route: 048
     Dates: start: 20040121, end: 20040901
  3. LASIX [Concomitant]
     Indication: HYPERTENSION
     Route: 065
     Dates: start: 19950101
  4. MOBIC [Concomitant]
     Indication: PAIN
     Route: 065
     Dates: start: 19810101
  5. PREMARIN [Concomitant]
     Indication: HORMONE LEVEL ABNORMAL
     Route: 065
     Dates: start: 19910101
  6. POTASSIUM (UNSPECIFIED) [Concomitant]
     Indication: HYPOKALAEMIA
     Route: 065
     Dates: start: 19980101

REACTIONS (9)
  - ARTERIOSCLEROSIS [None]
  - CEREBROVASCULAR ACCIDENT [None]
  - CHEST PAIN [None]
  - CHRONIC OBSTRUCTIVE PULMONARY DISEASE [None]
  - CORONARY ARTERY DISEASE [None]
  - DIABETES MELLITUS [None]
  - FOOT OPERATION [None]
  - HAEMATOCHEZIA [None]
  - TRANSIENT ISCHAEMIC ATTACK [None]
